FAERS Safety Report 15598295 (Version 1)
Quarter: 2018Q4

REPORT INFORMATION
  Report Type: Spontaneous
  Country: US (occurrence: US)
  Receive Date: 20181108
  Receipt Date: 20181108
  Transmission Date: 20190205
  Serious: No
  Sender: FDA-Public Use
  Company Number: US-ALLERGAN-1847909US

PATIENT
  Sex: Male

DRUGS (4)
  1. RAPAFLO [Suspect]
     Active Substance: SILODOSIN
     Dosage: 8 MG, QAM
     Route: 048
     Dates: start: 201807
  2. RAPAFLO [Suspect]
     Active Substance: SILODOSIN
     Indication: BENIGN PROSTATIC HYPERPLASIA
     Dosage: 8 MG EVERY THIRD MORNING
     Route: 048
  3. HYDROCHLOROTHIAZIDE. [Concomitant]
     Active Substance: HYDROCHLOROTHIAZIDE
     Indication: DIURETIC THERAPY
     Dosage: UNK UNK, PRN
     Route: 048
  4. RAPAFLO [Suspect]
     Active Substance: SILODOSIN
     Dosage: 8 MG, QHS
     Route: 048
     Dates: start: 2016

REACTIONS (7)
  - Pain in extremity [Recovered/Resolved]
  - Dyspnoea [Recovered/Resolved]
  - Sinus congestion [Recovered/Resolved]
  - Rhinorrhoea [Recovered/Resolved]
  - Musculoskeletal stiffness [Recovered/Resolved]
  - Back pain [Recovered/Resolved]
  - Inappropriate schedule of product administration [Unknown]
